FAERS Safety Report 4662408-9 (Version None)
Quarter: 2005Q2

REPORT INFORMATION
  Report Type: 
  Country: None (occurrence: None)
  Receive Date: 20050516
  Receipt Date: 20041130
  Transmission Date: 20051028
  Serious: Yes (Death)
  Sender: FDA-Public Use
  Company Number: US-MERCK-0412USA00412

PATIENT
  Age: 60 Year
  Sex: Male
  Weight: 65 kg

DRUGS (7)
  1. VIOXX [Suspect]
     Indication: ARTHRITIS
     Route: 048
     Dates: start: 20000901, end: 20021206
  2. VIOXX [Suspect]
     Route: 048
     Dates: start: 20000920, end: 20000901
  3. VOLTAREN [Concomitant]
     Route: 065
  4. PREDNISONE [Concomitant]
     Route: 065
  5. DEXAMETHASONE [Concomitant]
     Route: 030
  6. NICOTROL [Concomitant]
     Route: 055
     Dates: start: 20020902
  7. INFLUENZA VIRUS VACCINE (UNSPECIFIED) [Concomitant]
     Route: 065

REACTIONS (4)
  - ACUTE MYOCARDIAL INFARCTION [None]
  - ANGINA PECTORIS [None]
  - HIGH DENSITY LIPOPROTEIN DECREASED [None]
  - LOW DENSITY LIPOPROTEIN INCREASED [None]
